FAERS Safety Report 4856274-6 (Version None)
Quarter: 2005Q4

REPORT INFORMATION
  Report Type: 
  Country: None (occurrence: None)
  Receive Date: 20051215
  Receipt Date: 20051215
  Transmission Date: 20060501
  Serious: Yes (Other)
  Sender: FDA-Public Use
  Company Number: None

PATIENT
  Sex: Female
  Weight: 82.5547 kg

DRUGS (1)
  1. METFORMIN ER 500 MG 2 BID [Suspect]
     Dosage: 500 MG 2 PO BID
     Route: 048
     Dates: start: 20051201

REACTIONS (2)
  - ABDOMINAL PAIN UPPER [None]
  - VOMITING [None]
